FAERS Safety Report 10041177 (Version 1)
Quarter: 2014Q1

REPORT INFORMATION
  Report Type: Spontaneous
  Country: US (occurrence: US)
  Receive Date: 20140327
  Receipt Date: 20140327
  Transmission Date: 20141002
  Serious: Yes (Other)
  Sender: FDA-Public Use
  Company Number: US-PFIZER INC-2014083257

PATIENT
  Age: 42 Year
  Sex: Male
  Weight: 72.56 kg

DRUGS (1)
  1. DILANTIN-125 [Suspect]
     Indication: CONVULSION
     Dosage: UNK

REACTIONS (5)
  - Back disorder [Unknown]
  - Carpal tunnel syndrome [Unknown]
  - Tooth fracture [Unknown]
  - Tooth loss [Unknown]
  - Gingival recession [Unknown]
